FAERS Safety Report 6456844-8 (Version None)
Quarter: 2009Q4

REPORT INFORMATION
  Report Type: 
  Country: None (occurrence: None)
  Receive Date: 20091119
  Receipt Date: 20091104
  Transmission Date: 20100525
  Serious: Yes (Other)
  Sender: FDA-Public Use
  Company Number: 2009SP003069

PATIENT
  Age: 46 Year
  Sex: Male

DRUGS (4)
  1. OMNARIS [Suspect]
     Indication: RHINITIS
     Dosage: 200 UG; QD; NASAL
     Route: 045
  2. MICARDIS (CON.) [Concomitant]
  3. CRESTOR /01588602/ (CON.) [Concomitant]
  4. PREV MEDS [Concomitant]

REACTIONS (1)
  - RETINOPATHY [None]
